FAERS Safety Report 5989625-X (Version None)
Quarter: 2008Q4

REPORT INFORMATION
  Report Type: 
  Country: None (occurrence: None)
  Receive Date: 20081208
  Receipt Date: 20081121
  Transmission Date: 20090506
  Serious: Yes (Hospitalization, Other)
  Sender: FDA-Public Use
  Company Number: 2008AL012068

PATIENT
  Age: 31 Year
  Sex: Male

DRUGS (12)
  1. FERROUS SULFATE ELIXIR (ALPHARMA) [Suspect]
     Indication: ANAEMIA
     Dosage: 200 MG; TID; PO
     Route: 048
     Dates: start: 20080610, end: 20080714
  2. VALPROIC ACID [Concomitant]
  3. AMISULPRIDE [Concomitant]
  4. LACTULOSE [Concomitant]
  5. ALBUTEROL SULFATE [Concomitant]
  6. BECLOMETHASONE DIPROPIONATE [Concomitant]
  7. IPRATROPIUM BROMIDE [Concomitant]
  8. FYBOGEL [Concomitant]
  9. LANSOPRAZOLE [Concomitant]
  10. ASCORBIC ACID [Concomitant]
  11. OFLOXACIN [Concomitant]
  12. CLOZAPINE [Concomitant]

REACTIONS (7)
  - FAECALOMA [None]
  - GASTROINTESTINAL NECROSIS [None]
  - GASTROINTESTINAL STOMA COMPLICATION [None]
  - GENERAL PHYSICAL HEALTH DETERIORATION [None]
  - ORCHITIS [None]
  - PNEUMONIA [None]
  - POST PROCEDURAL COMPLICATION [None]
